FAERS Safety Report 9538080 (Version 1)
Quarter: 2013Q3

REPORT INFORMATION
  Report Type: Report from Study
  Country: CA (occurrence: CA)
  Receive Date: 20130920
  Receipt Date: 20130920
  Transmission Date: 20140515
  Serious: Yes (Death, Hospitalization, Other)
  Sender: FDA-Public Use
  Company Number: CA-ROCHE-1275662

PATIENT
  Age: 57 Year
  Sex: Male
  Weight: 66 kg

DRUGS (7)
  1. PEG-INTERFERON ALFA 2A [Suspect]
     Indication: HEPATITIS C
     Route: 058
     Dates: start: 20130724, end: 20130814
  2. RIBAVIRIN [Suspect]
     Indication: HEPATITIS C
     Route: 048
     Dates: start: 20130724, end: 20130821
  3. SOFOSBUVIR [Suspect]
     Indication: HEPATITIS C
     Route: 048
     Dates: start: 20130724, end: 20130821
  4. PROGRAF [Concomitant]
     Route: 065
     Dates: start: 20120218, end: 20130829
  5. METFORMIN [Concomitant]
     Route: 065
     Dates: start: 20120306, end: 20130829
  6. ASA [Concomitant]
     Route: 065
     Dates: start: 20120306, end: 20130829
  7. EFFEXOR [Concomitant]
     Route: 065
     Dates: start: 201109, end: 20130820

REACTIONS (2)
  - Renal failure acute [Fatal]
  - Sepsis [Fatal]
